FAERS Safety Report 5521883-8 (Version None)
Quarter: 2007Q4

REPORT INFORMATION
  Report Type: 
  Country: None (occurrence: None)
  Receive Date: 20071115
  Receipt Date: 20071106
  Transmission Date: 20080405
  Serious: Yes (Life-Threatening, Hospitalization)
  Sender: FDA-Public Use
  Company Number: E2020-01834-CLI-CA

PATIENT
  Age: 81 Year
  Sex: Female
  Weight: 78.5 kg

DRUGS (11)
  1. DONEPEZIL HCL [Suspect]
     Indication: VASCULAR DEMENTIA
     Dosage: 5 MG, 1 IN 1 D, ORAL
     Route: 048
     Dates: start: 20070927
  2. TYLENOL W/ CODEINE NO. 3 [Concomitant]
  3. CYTOTEC [Concomitant]
  4. MONOPRIL [Concomitant]
  5. HYDROCHLOROTHIAZIDE [Concomitant]
  6. NORVASC [Concomitant]
  7. PANTOPRAZOLE SODIUM [Concomitant]
  8. ASCORBIC ACID [Concomitant]
  9. CENTRUM MULTIVITAMIN (CENTRUM) [Concomitant]
  10. CIPRO [Concomitant]
  11. IMODIUM [Concomitant]

REACTIONS (2)
  - ACUTE MYOCARDIAL INFARCTION [None]
  - ELECTROCARDIOGRAM QT PROLONGED [None]
